FAERS Safety Report 13902599 (Version 1)
Quarter: 2017Q3

REPORT INFORMATION
  Report Type: Spontaneous
  Country: US (occurrence: US)
  Receive Date: 20170824
  Receipt Date: 20170824
  Transmission Date: 20171127
  Serious: No
  Sender: FDA-Public Use
  Company Number: US-ROCHE-1129845

PATIENT
  Sex: Female

DRUGS (4)
  1. NAVELBINE [Concomitant]
     Active Substance: VINORELBINE TARTRATE
     Route: 065
  2. XELODA [Suspect]
     Active Substance: CAPECITABINE
     Indication: PRODUCT USED FOR UNKNOWN INDICATION
     Route: 065
     Dates: start: 199910
  3. HERCEPTIN [Suspect]
     Active Substance: TRASTUZUMAB
     Indication: BREAST CANCER METASTATIC
     Dosage: 2 MG/KG OVER 30 MINS
     Route: 042
     Dates: start: 20000320
  4. AREDIA [Concomitant]
     Active Substance: PAMIDRONATE DISODIUM
     Dosage: OVER 2 HRS MONTHLY
     Route: 042

REACTIONS (10)
  - Back pain [Unknown]
  - Fatigue [Unknown]
  - Discomfort [Unknown]
  - Dyspnoea [Unknown]
  - Disease progression [Unknown]
  - Peripheral swelling [Unknown]
  - Decreased appetite [Unknown]
  - Neck pain [Unknown]
  - Depression [Unknown]
  - Vision blurred [Unknown]
